FAERS Safety Report 14595071 (Version 1)
Quarter: 2018Q1

REPORT INFORMATION
  Report Type: Spontaneous
  Country: US (occurrence: US)
  Receive Date: 20180302
  Receipt Date: 20180302
  Transmission Date: 20180509
  Serious: No
  Sender: FDA-Public Use
  Company Number: US-AKORN PHARMACEUTICALS-2017AKN00764

PATIENT
  Sex: Female
  Weight: 43.84 kg

DRUGS (21)
  1. BONIVA [Concomitant]
     Active Substance: IBANDRONATE SODIUM
     Dosage: 150 MG, 1X/MONTH
     Route: 048
  2. DMSO [Concomitant]
     Active Substance: DIMETHYL SULFOXIDE
     Dosage: 50 ML, EVERY 2 MONTHS
  3. HEPARIN [Concomitant]
     Active Substance: HEPARIN SODIUM
     Dosage: 10000 IU (EVERY 2 MONTHS)
  4. GYNOKADIN GEL [Concomitant]
     Dosage: 0.6 MG, 1X/DAY
  5. TRIAMCINOLONE ACETONIDE CREAM 0.1 CR [Concomitant]
     Dosage: UNK UNK, AS NEEDED
  6. XOPENEX HFA [Concomitant]
     Active Substance: LEVALBUTEROL TARTRATE
     Dosage: UNK, AS NEEDED
  7. MYORISAN [Suspect]
     Active Substance: ISOTRETINOIN
     Indication: ACNE
     Dosage: 30 MG, 1X/DAY
     Dates: start: 20170130, end: 20170228
  8. CARNITINE 500 [Concomitant]
  9. GREEN TEA COMPLEX [Concomitant]
  10. BURN 60 [Concomitant]
  11. ALLEGRA [Concomitant]
     Active Substance: FEXOFENADINE HYDROCHLORIDE
     Dosage: 180 MG, 1X/DAY
  12. ADVAIR HFA [Concomitant]
     Active Substance: FLUTICASONE PROPIONATE\SALMETEROL XINAFOATE
     Dosage: 1 DOSAGE UNITS, 2X/DAY
  13. PREMARIN VAGNIAL CREAM [Concomitant]
     Dosage: .625 MG, 1X/DAY (FOR 2 WEEKS)
  14. OVESTIN CREAM [Concomitant]
     Dosage: UNK, 2X/WEEK
  15. WOMENS ULTRA MEGA ACTIVE WITHOUT IRON [Concomitant]
  16. TOLTERODINE [Concomitant]
     Active Substance: TOLTERODINE
     Dosage: 4 MG, 1X/DAY
  17. ALEVE [Concomitant]
     Active Substance: NAPROXEN SODIUM
  18. MYORISAN [Suspect]
     Active Substance: ISOTRETINOIN
     Dosage: 30 MG, 1X/DAY
     Dates: start: 20170605
  19. MYORISAN [Suspect]
     Active Substance: ISOTRETINOIN
     Dosage: 40 MG, 1X/DAY
     Dates: start: 20170228, end: 20170605
  20. SINGULAIR [Concomitant]
     Active Substance: MONTELUKAST SODIUM
     Dosage: 10 MG, 1X/DAY
  21. LIDOCAINE 1% [Concomitant]
     Active Substance: LIDOCAINE
     Dosage: 10 ML, (EVERY 2 MONTHS)

REACTIONS (3)
  - Fatigue [Unknown]
  - Vision blurred [Recovering/Resolving]
  - Headache [Recovering/Resolving]

NARRATIVE: CASE EVENT DATE: 2017
